FAERS Safety Report 7463311-1 (Version None)
Quarter: 2011Q2

REPORT INFORMATION
  Report Type: 
  Country: None (occurrence: None)
  Receive Date: 20110506
  Receipt Date: 20110430
  Transmission Date: 20111010
  Serious: Yes (Death, Hospitalization)
  Sender: FDA-Public Use
  Company Number: US-PFIZER INC-2011057957

PATIENT
  Age: 53 Year
  Sex: Female
  Weight: 75.2 kg

DRUGS (7)
  1. CITALOPRAM [Concomitant]
  2. SUTENT [Suspect]
     Indication: OVARIAN CANCER METASTATIC
     Dosage: 50 MG, 1X/DAY FOR 4 WEEKS FOLLOWED BY 2 WEEKS OFF
     Route: 048
     Dates: start: 20110204, end: 20110216
  3. PRENATAL VITAMINS [Concomitant]
  4. MIRALAX [Concomitant]
  5. ENOXAPARIN SODIUM [Concomitant]
  6. CITRACAL + D [Concomitant]
  7. HYDROCODONE [Concomitant]

REACTIONS (3)
  - COLITIS [None]
  - DEATH [None]
  - ABDOMINAL DISTENSION [None]
